FAERS Safety Report 25350724 (Version 2)
Quarter: 2025Q2

REPORT INFORMATION
  Report Type: Spontaneous
  Country: PK (occurrence: PK)
  Receive Date: 20250523
  Receipt Date: 20250528
  Transmission Date: 20250717
  Serious: Yes (Other)
  Sender: ROCHE
  Company Number: PK-ROCHE-10000287819

PATIENT
  Age: 73 Year
  Sex: Female

DRUGS (1)
  1. VABYSMO [Suspect]
     Active Substance: FARICIMAB-SVOA
     Indication: Product used for unknown indication
     Route: 065

REACTIONS (7)
  - Oedema peripheral [Unknown]
  - Cardiac disorder [Unknown]
  - Dyspnoea [Unknown]
  - Asthenia [Unknown]
  - Thrombocytopenia [Unknown]
  - Hypotension [Unknown]
  - Skin discolouration [Unknown]
